FAERS Safety Report 21293939 (Version 2)
Quarter: 2022Q3

REPORT INFORMATION
  Report Type: Other
  Country: US (occurrence: None)
  Receive Date: 20220905
  Receipt Date: 20220913
  Transmission Date: 20221026
  Serious: Yes (Other)
  Sender: FDA-Public Use
  Company Number: US-ROCHE-3171751

PATIENT
  Sex: Female

DRUGS (2)
  1. OCREVUS [Suspect]
     Active Substance: OCRELIZUMAB
     Indication: Multiple sclerosis
     Route: 042
  2. BACLOFEN [Concomitant]
     Active Substance: BACLOFEN

REACTIONS (33)
  - Multiple sclerosis [Unknown]
  - Multiple sclerosis [Unknown]
  - Upper motor neurone lesion [Unknown]
  - Urinary retention [Unknown]
  - Dysstasia [Unknown]
  - Urinary tract infection [Unknown]
  - Paraesthesia [Unknown]
  - Skin disorder [Unknown]
  - Cough [Unknown]
  - Choking [Unknown]
  - Confusional state [Unknown]
  - Agitation [Unknown]
  - Anal incontinence [Unknown]
  - Disturbance in attention [Unknown]
  - Dysarthria [Unknown]
  - Fall [Unknown]
  - Hypertonia [Unknown]
  - Generalised anxiety disorder [Unknown]
  - Osteoporosis [Unknown]
  - Type IIa hyperlipidaemia [Unknown]
  - Restless legs syndrome [Unknown]
  - Muscular weakness [Unknown]
  - Drug ineffective [Unknown]
  - Micturition urgency [Unknown]
  - Wheelchair user [Unknown]
  - Weight bearing difficulty [Unknown]
  - Muscle spasticity [Unknown]
  - Temperature intolerance [Unknown]
  - Fatigue [Unknown]
  - Vision blurred [Unknown]
  - Urinary incontinence [Unknown]
  - Muscle spasms [Unknown]
  - Uhthoff^s phenomenon [Unknown]
